FAERS Safety Report 25567759 (Version 1)
Quarter: 2025Q3

REPORT INFORMATION
  Report Type: Report from Study
  Country: US (occurrence: US)
  Receive Date: 20250716
  Receipt Date: 20250716
  Transmission Date: 20251021
  Serious: Yes (Other)
  Sender: TAKEDA
  Company Number: US-TAKEDA-2024TUS083287

PATIENT
  Sex: Female

DRUGS (2)
  1. VEDOLIZUMAB [Suspect]
     Active Substance: VEDOLIZUMAB
     Indication: Colitis ulcerative
     Dosage: 108 MILLIGRAM, Q2WEEKS
  2. VEDOLIZUMAB [Suspect]
     Active Substance: VEDOLIZUMAB

REACTIONS (8)
  - Colitis ulcerative [Unknown]
  - Injection site haemorrhage [Unknown]
  - COVID-19 [Unknown]
  - Rhinovirus infection [Unknown]
  - Injection site pain [Unknown]
  - Muscle spasms [Unknown]
  - Arthralgia [Unknown]
  - Upper respiratory tract infection [Unknown]
